FAERS Safety Report 15698195 (Version 8)
Quarter: 2021Q2

REPORT INFORMATION
  Report Type: Spontaneous
  Country: US (occurrence: US)
  Receive Date: 20181207
  Receipt Date: 20210620
  Transmission Date: 20210716
  Serious: No
  Sender: FDA-Public Use
  Company Number: US-BIOGEN-2018BI00668187

PATIENT
  Sex: Female

DRUGS (6)
  1. MODAFINIL. [Concomitant]
     Active Substance: MODAFINIL
     Route: 065
  2. CALCIUM CARBONATE. [Concomitant]
     Active Substance: CALCIUM CARBONATE
     Route: 065
  3. TECFIDERA [Suspect]
     Active Substance: DIMETHYL FUMARATE
     Route: 050
     Dates: start: 2018
  4. MAGNESIUM SULFATE. [Concomitant]
     Active Substance: MAGNESIUM SULFATE
     Route: 065
  5. TYLENOL PM EXTRA STRENGTH [Concomitant]
     Active Substance: ACETAMINOPHEN\DIPHENHYDRAMINE HYDROCHLORIDE
     Route: 065
  6. TECFIDERA [Suspect]
     Active Substance: DIMETHYL FUMARATE
     Indication: MULTIPLE SCLEROSIS
     Route: 050
     Dates: start: 20131121, end: 20210407

REACTIONS (14)
  - Musculoskeletal stiffness [Not Recovered/Not Resolved]
  - Temperature intolerance [Recovered/Resolved]
  - Body temperature increased [Recovered/Resolved]
  - Hot flush [Recovered/Resolved]
  - Drug ineffective [Unknown]
  - Decreased immune responsiveness [Recovered/Resolved]
  - Abdominal discomfort [Unknown]
  - Hemiparesis [Unknown]
  - Gastrointestinal disorder [Recovered/Resolved]
  - Secondary progressive multiple sclerosis [Unknown]
  - Central nervous system inflammation [Unknown]
  - Primary progressive multiple sclerosis [Recovered/Resolved]
  - Hypoacusis [Recovered/Resolved]
  - Feeling hot [Not Recovered/Not Resolved]
